FAERS Safety Report 5169850-0 (Version None)
Quarter: 2006Q4

REPORT INFORMATION
  Report Type: 
  Country: None (occurrence: None)
  Receive Date: 20061212
  Receipt Date: 20061006
  Transmission Date: 20070319
  Serious: No
  Sender: FDA-Public Use
  Company Number: US-AMGEN-US196027

PATIENT
  Age: 40 Year
  Sex: Female

DRUGS (2)
  1. SENSIPAR [Suspect]
     Indication: HYPERPARATHYROIDISM SECONDARY
     Route: 065
     Dates: start: 20060101, end: 20060101
  2. FOSRENOL [Concomitant]
     Route: 065

REACTIONS (2)
  - BLOOD CALCIUM DECREASED [None]
  - HEADACHE [None]
